FAERS Safety Report 12238872 (Version 2)
Quarter: 2016Q2

REPORT INFORMATION
  Report Type: Spontaneous
  Country: US (occurrence: US)
  Receive Date: 20160405
  Receipt Date: 20160415
  Transmission Date: 20160815
  Serious: Yes (Other)
  Sender: FDA-Public Use
  Company Number: US-RECKITT BENCKISER HEALTHCARE INT LIMITED-RB-83838-2016

PATIENT
  Age: 36 Year
  Sex: Female

DRUGS (1)
  1. MUCINEX [Suspect]
     Active Substance: GUAIFENESIN
     Indication: NASOPHARYNGITIS
     Dosage: TOOK APPROXIMATELY 5 DOSES OVER 3 DAYS
     Route: 048
     Dates: start: 201603

REACTIONS (8)
  - Throat tightness [Unknown]
  - Product tampering [Unknown]
  - Drug ineffective [Not Recovered/Not Resolved]
  - Lung abscess [Recovered/Resolved]
  - Swollen tongue [Unknown]
  - Ear discomfort [Unknown]
  - Haemoptysis [Unknown]
  - Burning sensation [Unknown]

NARRATIVE: CASE EVENT DATE: 201603
